FAERS Safety Report 23904871 (Version 1)
Quarter: 2024Q2

REPORT INFORMATION
  Report Type: Spontaneous
  Country: US (occurrence: US)
  Receive Date: 20240527
  Receipt Date: 20240527
  Transmission Date: 20240717
  Serious: No
  Sender: FDA-Public Use
  Company Number: US-TEVA-VS-3198397

PATIENT
  Age: 84 Year
  Sex: Female

DRUGS (5)
  1. FLUTICASONE PROPIONATE AND SALMETEROL [Suspect]
     Active Substance: FLUTICASONE PROPIONATE\SALMETEROL XINAFOATE
     Indication: Chronic obstructive pulmonary disease
     Dosage: DOSE:250/50 MCG/DOSE-MCG/DOSE; TWICE A DAY
     Route: 055
     Dates: start: 20240511
  2. FLUTICASONE PROPIONATE AND SALMETEROL [Suspect]
     Active Substance: FLUTICASONE PROPIONATE\SALMETEROL XINAFOATE
  3. IPRATROPIUM BROMIDE [Concomitant]
     Active Substance: IPRATROPIUM BROMIDE\IPRATROPIUM BROMIDE ANHYDROUS
  4. ALBUTEROL SULFATE [Concomitant]
     Active Substance: ALBUTEROL SULFATE
  5. VITAMINS [Concomitant]
     Active Substance: VITAMINS

REACTIONS (4)
  - Condition aggravated [Unknown]
  - Lacrimation increased [Unknown]
  - Eye pain [Unknown]
  - Visual impairment [Unknown]
